FAERS Safety Report 21247019 (Version 2)
Quarter: 2022Q4

REPORT INFORMATION
  Report Type: Report from Study
  Country: US (occurrence: US)
  Receive Date: 20220824
  Receipt Date: 20221207
  Transmission Date: 20230113
  Serious: No
  Sender: FDA-Public Use
  Company Number: US-NOVARTISTESTPH-NVSC2022US187728

PATIENT
  Sex: Female

DRUGS (1)
  1. ISOSORBIDE [Suspect]
     Active Substance: ISOSORBIDE
     Indication: Arterial spasm
     Dosage: UNK
     Route: 065

REACTIONS (1)
  - Headache [Unknown]
